FAERS Safety Report 26124550 (Version 1)
Quarter: 2025Q4

REPORT INFORMATION
  Report Type: Report from Study
  Country: JP (occurrence: JP)
  Receive Date: 20251205
  Receipt Date: 20251205
  Transmission Date: 20260117
  Serious: Yes (Hospitalization, Other)
  Sender: ROCHE
  Company Number: JP-CHUGAI-2025038999

PATIENT
  Age: 73 Year
  Sex: Male
  Weight: 47 kg

DRUGS (4)
  1. AVASTIN [Suspect]
     Active Substance: BEVACIZUMAB
     Indication: Hepatocellular carcinoma
     Dosage: 740 MILLIGRAM, ONCE/3WEEKS
     Route: 042
     Dates: start: 20230106, end: 20230720
  2. TECENTRIQ [Suspect]
     Active Substance: ATEZOLIZUMAB
     Indication: Hepatocellular carcinoma
     Dosage: 1200 MILLIGRAM, ONCE/3WEEKS
     Route: 042
     Dates: start: 20230106, end: 20230720
  3. MIYA-BM [Concomitant]
     Active Substance: CLOSTRIDIUM BUTYRICUM SPORES STRAIN M-55
     Dosage: UNK
     Route: 065
  4. LEVOTHYROXINE SODIUM [Concomitant]
     Active Substance: LEVOTHYROXINE SODIUM
     Dosage: UNK
     Route: 048

REACTIONS (2)
  - Ascites [Recovering/Resolving]
  - Portal hypertension [Unknown]

NARRATIVE: CASE EVENT DATE: 20230730
